FAERS Safety Report 10202518 (Version 2)
Quarter: 2014Q2

REPORT INFORMATION
  Report Type: Report from Study
  Country: US (occurrence: US)
  Receive Date: 20140528
  Receipt Date: 20140528
  Transmission Date: 20141212
  Serious: Yes (Hospitalization, Other)
  Sender: FDA-Public Use
  Company Number: PHEH2014US005331

PATIENT
  Age: 35 Year
  Sex: Male
  Weight: 77.7 kg

DRUGS (1)
  1. MYFORTIC [Suspect]
     Indication: RENAL TRANSPLANT
     Dosage: 720 MG, BID
     Route: 048

REACTIONS (4)
  - Hepatic cirrhosis [Unknown]
  - Liver function test abnormal [Unknown]
  - Diabetes mellitus [Unknown]
  - Hyperlipidaemia [Unknown]
